FAERS Safety Report 8806324 (Version 3)
Quarter: 2012Q4

REPORT INFORMATION
  Report Type: 
  Country: US (occurrence: US)
  Receive Date: 20120925
  Receipt Date: 20121129
  Transmission Date: 20130627
  Serious: Yes (Death)
  Sender: FDA-Public Use
  Company Number: US-CELGENEUS-163-21880-12092639

PATIENT
  Age: 95 Year
  Sex: Female

DRUGS (1)
  1. REVLIMID [Suspect]
     Indication: LYMPHOMA NOS
     Dosage: 25 Milligram
     Route: 048
     Dates: start: 20120820, end: 201208

REACTIONS (1)
  - Lymphoma [Fatal]
